FAERS Safety Report 7435882-2 (Version None)
Quarter: 2011Q2

REPORT INFORMATION
  Report Type: 
  Country: None (occurrence: None)
  Receive Date: 20110425
  Receipt Date: 20110414
  Transmission Date: 20111010
  Serious: Yes (Hospitalization)
  Sender: FDA-Public Use
  Company Number: FR-ASTRAZENECA-2011SE22417

PATIENT
  Age: 23332 Day
  Sex: Female

DRUGS (5)
  1. FERINJECT [Concomitant]
  2. ERYTHROPOETIN [Concomitant]
  3. NEXIUM [Suspect]
     Route: 048
     Dates: end: 20110329
  4. INDOCIN [Suspect]
     Route: 048
     Dates: end: 20110323
  5. CORTANCYL [Concomitant]
     Dates: start: 20060101

REACTIONS (2)
  - RENAL FAILURE ACUTE [None]
  - TUBULOINTERSTITIAL NEPHRITIS [None]
